FAERS Safety Report 8121528-7 (Version None)
Quarter: 2012Q1

REPORT INFORMATION
  Report Type: 
  Country: None (occurrence: None)
  Receive Date: 20120208
  Receipt Date: 20120131
  Transmission Date: 20120608
  Serious: Yes (Hospitalization, Other)
  Sender: FDA-Public Use
  Company Number: US-ABBOTT-11P-163-0865189-00

PATIENT
  Sex: Male
  Weight: 77.18 kg

DRUGS (17)
  1. SEREVENT [Concomitant]
     Indication: PRODUCT USED FOR UNKNOWN INDICATION
  2. NEXIUM [Concomitant]
     Indication: PRODUCT USED FOR UNKNOWN INDICATION
  3. CRESTOR [Concomitant]
     Indication: BLOOD CHOLESTEROL INCREASED
  4. VICODIN [Concomitant]
     Indication: PAIN
  5. CELEXA [Concomitant]
     Indication: DEPRESSION
  6. XANAX [Concomitant]
     Indication: PRODUCT USED FOR UNKNOWN INDICATION
  7. ENTECORT EC [Concomitant]
     Indication: CROHN'S DISEASE
     Dates: start: 20110628, end: 20110701
  8. VITAMIN D [Concomitant]
     Indication: PRODUCT USED FOR UNKNOWN INDICATION
  9. PLAVIX [Concomitant]
     Indication: STENT PLACEMENT
  10. ASPIRIN [Concomitant]
     Indication: PRODUCT USED FOR UNKNOWN INDICATION
  11. HUMIRA [Suspect]
     Indication: CROHN'S DISEASE
     Route: 058
     Dates: start: 20110715, end: 20110801
  12. ALBUTEROL [Concomitant]
     Indication: PRODUCT USED FOR UNKNOWN INDICATION
  13. FLOMAX [Concomitant]
     Indication: PRODUCT USED FOR UNKNOWN INDICATION
  14. TOPROL-XL [Concomitant]
     Indication: PRODUCT USED FOR UNKNOWN INDICATION
  15. METOPROLOL [Concomitant]
     Indication: HYPERTENSION
  16. ASACOL [Concomitant]
     Indication: CROHN'S DISEASE
  17. SYMBALTA [Concomitant]
     Indication: PRODUCT USED FOR UNKNOWN INDICATION

REACTIONS (11)
  - MUSCLE SPASMS [None]
  - WEIGHT INCREASED [None]
  - TOOTHACHE [None]
  - OESOPHAGEAL CANDIDIASIS [None]
  - CHEST PAIN [None]
  - GASTRITIS [None]
  - THROMBOSIS [None]
  - OESOPHAGITIS [None]
  - THERAPEUTIC RESPONSE UNEXPECTED [None]
  - ARRHYTHMIA [None]
  - FIBRIN D DIMER INCREASED [None]
